FAERS Safety Report 9735818 (Version 1)
Quarter: 2013Q4

REPORT INFORMATION
  Report Type: Spontaneous
  Country: US (occurrence: US)
  Receive Date: 20131206
  Receipt Date: 20131206
  Transmission Date: 20140711
  Serious: No
  Sender: FDA-Public Use
  Company Number: US-GILEAD-2009-0023755

PATIENT
  Sex: Female
  Weight: 78.02 kg

DRUGS (15)
  1. LETAIRIS [Suspect]
     Route: 048
     Dates: start: 20080813
  2. COUMADIN [Concomitant]
  3. REVATIO [Concomitant]
  4. CELLCEPT [Concomitant]
  5. LASIX [Concomitant]
  6. PHENERGAN [Concomitant]
  7. PLAQUENIL [Concomitant]
  8. ALDACTONE [Concomitant]
  9. AMBIEN [Concomitant]
  10. LORAZEPAM [Concomitant]
  11. NORCO [Concomitant]
  12. TRAZODONE [Concomitant]
  13. OXYCONTIN [Concomitant]
  14. POTASSIUM [Concomitant]
  15. NEXIUM [Concomitant]

REACTIONS (1)
  - Epistaxis [Unknown]
